FAERS Safety Report 9533849 (Version 1)
Quarter: 2013Q3

REPORT INFORMATION
  Report Type: Spontaneous
  Country: FR (occurrence: FR)
  Receive Date: 20130918
  Receipt Date: 20130918
  Transmission Date: 20140515
  Serious: Yes (Hospitalization)
  Sender: FDA-Public Use
  Company Number: FR-BRISTOL-MYERS SQUIBB COMPANY-19342922

PATIENT
  Age: 88 Year
  Sex: Female

DRUGS (11)
  1. ACTISKENAN CAPS 5 MG [Suspect]
     Dosage: 1DF:6/D
     Route: 048
     Dates: start: 201306, end: 20130726
  2. PARACETAMOL [Suspect]
     Dates: start: 201306
  3. GLUCOPHAGE TABS 500 MG [Suspect]
     Dates: end: 20130726
  4. MONO-TILDIEM LP [Suspect]
     Dates: end: 20130726
  5. BIPRETERAX [Suspect]
     Dosage: 1DF:4MG/1.25MG
     Route: 048
     Dates: end: 20130726
  6. THALIDOMIDE [Concomitant]
     Route: 048
     Dates: start: 201306
  7. MELPHALAN [Concomitant]
     Dosage: 10MG FOR 4 DAYS THEN 40 MG EVERY 6 WEEKS
     Route: 048
     Dates: start: 201306
  8. PREDNISONE [Concomitant]
     Route: 048
     Dates: start: 201306
  9. PREVISCAN [Concomitant]
     Dosage: STR PREVISCAN 20 MG
     Route: 048
  10. LEVOTHYROX [Concomitant]
     Route: 048
  11. GLICLAZIDE [Concomitant]

REACTIONS (2)
  - Renal failure acute [Recovered/Resolved]
  - Vomiting [Recovered/Resolved]
